FAERS Safety Report 5095357-5 (Version None)
Quarter: 2006Q3

REPORT INFORMATION
  Report Type: 
  Country: None (occurrence: None)
  Receive Date: 20060901
  Receipt Date: 20060116
  Transmission Date: 20061208
  Serious: Yes (Death)
  Sender: FDA-Public Use
  Company Number: JP-SANOFI-SYNTHELABO-A01200600529

PATIENT
  Sex: Male

DRUGS (8)
  1. FLUOROURACIL [Suspect]
     Route: 042
     Dates: start: 20060111, end: 20060111
  2. CALCIUM LEVOFOLINATE [Suspect]
     Route: 042
     Dates: start: 20060111, end: 20060111
  3. OXALIPLATIN [Suspect]
     Route: 042
     Dates: start: 20060111, end: 20060111
  4. MEFRUSIDE [Concomitant]
     Route: 048
  5. GLIMEPIRIDE [Concomitant]
     Route: 048
  6. FLURBIPROFEN [Concomitant]
     Dosage: 1DF
     Route: 042
     Dates: start: 20060112, end: 20060112
  7. GRANISETRON [Concomitant]
     Dosage: 1 DF
     Route: 042
     Dates: start: 20060112, end: 20060112
  8. DEXAMETHASONE [Concomitant]
     Route: 042
     Dates: start: 20060111, end: 20060111

REACTIONS (2)
  - ACUTE MYOCARDIAL INFARCTION [None]
  - MYOCARDIAL INFARCTION [None]
